FAERS Safety Report 15332314 (Version 1)
Quarter: 2018Q3

REPORT INFORMATION
  Report Type: Spontaneous
  Country: US (occurrence: US)
  Receive Date: 20180829
  Receipt Date: 20180829
  Transmission Date: 20181010
  Serious: Yes (Hospitalization, Other)
  Sender: FDA-Public Use
  Company Number: US-009507513-1808USA009402

PATIENT
  Age: 72 Year
  Sex: Female

DRUGS (2)
  1. KEYTRUDA [Suspect]
     Active Substance: PEMBROLIZUMAB
     Indication: PRODUCT USED FOR UNKNOWN INDICATION
     Dosage: UNK
     Route: 065
     Dates: start: 201602
  2. IMLYGIC [Suspect]
     Active Substance: TALIMOGENE LAHERPAREPVEC
     Indication: MALIGNANT MELANOMA
     Dosage: 106 PFU/ML, UNK
     Route: 065
     Dates: start: 201602

REACTIONS (9)
  - Scleral oedema [Unknown]
  - Swelling [Not Recovered/Not Resolved]
  - Eye swelling [Unknown]
  - Off label use [Unknown]
  - Eyelid oedema [Not Recovered/Not Resolved]
  - Contusion [Unknown]
  - Inflammation [Recovered/Resolved]
  - Malignant neoplasm progression [Unknown]
  - Rash [Unknown]

NARRATIVE: CASE EVENT DATE: 201602
